FAERS Safety Report 4618099-6 (Version None)
Quarter: 2005Q2

REPORT INFORMATION
  Report Type: 
  Country: None (occurrence: None)
  Receive Date: 20050316
  Receipt Date: 20050103
  Transmission Date: 20051028
  Serious: Yes (Other)
  Sender: FDA-Public Use
  Company Number: S05-USA-00042-01

PATIENT
  Age: 57 Year
  Sex: Female
  Weight: 62.1428 kg

DRUGS (1)
  1. LEXAPRO [Suspect]
     Indication: DEPRESSION
     Dosage: 10 GM QD PO
     Route: 048
     Dates: start: 20031124, end: 20041201

REACTIONS (1)
  - HYPONATRAEMIA [None]
